FAERS Safety Report 17462799 (Version 3)
Quarter: 2022Q3

REPORT INFORMATION
  Report Type: Report from Study
  Country: US (occurrence: US)
  Receive Date: 20200226
  Receipt Date: 20220715
  Transmission Date: 20221027
  Serious: Yes (Hospitalization, Other)
  Sender: FDA-Public Use
  Company Number: US-TAKEDA-2017MPI007797

PATIENT
  Age: 62 Year
  Sex: Male
  Weight: 81 kg

DRUGS (11)
  1. IXAZOMIB [Suspect]
     Active Substance: IXAZOMIB
     Indication: Plasma cell myeloma
     Dosage: 4 MILLIGRAM
     Route: 048
     Dates: start: 20170817
  2. IXAZOMIB [Suspect]
     Active Substance: IXAZOMIB
     Dosage: 4 MILLIGRAM
     Route: 048
     Dates: start: 201801
  3. IXAZOMIB [Suspect]
     Active Substance: IXAZOMIB
     Dosage: 4 MILLIGRAM
     Route: 048
     Dates: start: 20201013
  4. DEXAMETHASONE [Suspect]
     Active Substance: DEXAMETHASONE
     Indication: Plasma cell myeloma
     Dosage: UNK
     Route: 065
     Dates: start: 20170419
  5. POMALYST [Suspect]
     Active Substance: POMALIDOMIDE
     Indication: Plasma cell myeloma
     Dosage: UNK
     Route: 065
  6. REVLIMID [Suspect]
     Active Substance: LENALIDOMIDE
     Indication: Plasma cell myeloma
     Dosage: UNK
     Route: 065
  7. ACYCLOVIR                          /00587301/ [Concomitant]
     Dosage: UNK
     Route: 065
  8. ZOMETA [Concomitant]
     Active Substance: ZOLEDRONIC ACID
     Dosage: UNK
     Route: 065
  9. CALCIUM [Concomitant]
     Active Substance: CALCIUM
     Dosage: UNK
     Route: 065
     Dates: start: 20170419
  10. BAYER ASPIRIN [Concomitant]
     Active Substance: ASPIRIN
     Dosage: UNK, QD
     Route: 065
     Dates: start: 20170419
  11. DAILY VITAMINS/ Multivitamin [Concomitant]
     Dosage: UNK
     Route: 065
     Dates: start: 20170419

REACTIONS (14)
  - Pneumonia [Unknown]
  - Chest pain [Unknown]
  - Light chain analysis increased [Unknown]
  - Pleurisy [Unknown]
  - Sedation [Unknown]
  - Nasopharyngitis [Not Recovered/Not Resolved]
  - Headache [Unknown]
  - Bone pain [Unknown]
  - Back pain [Unknown]
  - Sinus headache [Recovering/Resolving]
  - Rash [Unknown]
  - Diarrhoea [Unknown]
  - Product dose omission issue [Unknown]
  - Off label use [Unknown]

NARRATIVE: CASE EVENT DATE: 20170801
